FAERS Safety Report 9420991 (Version 1)
Quarter: 2013Q3

REPORT INFORMATION
  Report Type: Spontaneous
  Country: US (occurrence: US)
  Receive Date: 20130725
  Receipt Date: 20130725
  Transmission Date: 20140515
  Serious: No
  Sender: FDA-Public Use
  Company Number: US-ABBOTT-13P-163-1108348-00

PATIENT
  Age: 51 Year
  Sex: Female
  Weight: 56.75 kg

DRUGS (3)
  1. SYNTHROID [Suspect]
     Indication: HYPOTHYROIDISM
  2. METROGEL [Concomitant]
     Indication: PRODUCT USED FOR UNKNOWN INDICATION
  3. TRANSDERMA ESTROGEN/PROGESTERONE [Concomitant]
     Indication: PRODUCT USED FOR UNKNOWN INDICATION
     Dates: end: 201305

REACTIONS (17)
  - Myalgia [Recovered/Resolved]
  - Hyperhidrosis [Recovered/Resolved]
  - Staphylococcal infection [Recovered/Resolved]
  - Furuncle [Recovered/Resolved]
  - Mucosal inflammation [Recovered/Resolved]
  - Oral disorder [Recovered/Resolved]
  - Urinary tract infection [Recovered/Resolved]
  - Fungal infection [Recovered/Resolved]
  - Weight gain poor [Recovered/Resolved]
  - Ocular hyperaemia [Recovered/Resolved]
  - Neck pain [Recovered/Resolved]
  - Product quality issue [Not Recovered/Not Resolved]
  - Muscular weakness [Recovered/Resolved]
  - Irritability [Recovered/Resolved]
  - Insomnia [Recovered/Resolved]
  - Vomiting [Recovered/Resolved]
  - Headache [Recovered/Resolved]
